FAERS Safety Report 6724591-0 (Version None)
Quarter: 2010Q2

REPORT INFORMATION
  Report Type: 
  Country: None (occurrence: None)
  Receive Date: 20100513
  Receipt Date: 20100128
  Transmission Date: 20101027
  Serious: Yes (Life-Threatening, Hospitalization, Other)
  Sender: FDA-Public Use
  Company Number: JP-PFIZER INC-2010059055

PATIENT
  Age: 84 Year
  Sex: Female
  Weight: 41 kg

DRUGS (13)
  1. LIPITOR [Suspect]
     Indication: HYPERLIPIDAEMIA
     Dosage: 5 MG, 1X/DAY
     Route: 048
     Dates: start: 20090104, end: 20090118
  2. LEUCOVORIN CALCIUM [Suspect]
     Indication: ADVERSE REACTION
     Dosage: 48 MG, UNK
     Dates: start: 20100115, end: 20100118
  3. RHEUMATREX [Suspect]
     Indication: RHEUMATOID ARTHRITIS
     Dosage: FREQUENCY: WEEKLY;
     Route: 048
     Dates: start: 20090323, end: 20100115
  4. OMEPRAL [Suspect]
     Dosage: 20 MG, 1X/DAY
     Dates: start: 20100114, end: 20100116
  5. CANDESARTAN CILEXETIL [Concomitant]
     Dosage: UNK
     Route: 048
     Dates: start: 20090915
  6. THEO-DUR [Concomitant]
     Dosage: UNK
     Dates: end: 20100109
  7. FERRO-GRADUMET [Concomitant]
     Dosage: UNK
     Route: 048
     Dates: start: 20090101, end: 20100109
  8. NYCLIN [Concomitant]
     Dosage: UNK
     Route: 048
     Dates: end: 20100109
  9. REBAMIPIDE [Concomitant]
     Dosage: UNK
     Route: 048
     Dates: end: 20100109
  10. LIMAPROST [Concomitant]
     Dosage: UNK
     Route: 048
     Dates: end: 20100109
  11. LOXOPROFEN SODIUM [Concomitant]
     Dosage: UNK
     Route: 048
     Dates: end: 20100109
  12. PRIMPERAN TAB [Concomitant]
     Dosage: UNK
     Route: 048
     Dates: start: 20091023, end: 20091024
  13. ACTONEL [Concomitant]
     Dosage: UNK
     Route: 048
     Dates: start: 20090817, end: 20091201

REACTIONS (4)
  - AGRANULOCYTOSIS [None]
  - DECREASED APPETITE [None]
  - HEPATIC FUNCTION ABNORMAL [None]
  - MALAISE [None]
